FAERS Safety Report 23747723 (Version 1)
Quarter: 2024Q2

REPORT INFORMATION
  Report Type: Spontaneous
  Country: FR (occurrence: FR)
  Receive Date: 20240416
  Receipt Date: 20240416
  Transmission Date: 20240716
  Serious: Yes (Hospitalization, Other)
  Sender: FDA-Public Use
  Company Number: FR-FreseniusKabi-FK202406102

PATIENT
  Age: 3 Week
  Sex: Male
  Weight: 3.5 kg

DRUGS (7)
  1. ROCURONIUM BROMIDE [Suspect]
     Active Substance: ROCURONIUM BROMIDE
     Indication: Neuromuscular blockade
     Dosage: FREQUENCY: SINGLE DOSE ?8 MG (2.3 MG KG-1)
  2. SUGAMMADEX [Suspect]
     Active Substance: SUGAMMADEX
     Indication: Neuromuscular blockade reversal
     Dosage: 15 MG (4.3 MG KG-1)
  3. SUGAMMADEX [Suspect]
     Active Substance: SUGAMMADEX
     Dosage: 15 MG (4.3 MG KG-1)?ADMINISTERED 85 MIN AFTER THE INITIAL DOSE
  4. PROPOFOL [Concomitant]
     Active Substance: PROPOFOL
     Indication: Anaesthesia
     Dosage: 3.4 MGKG-1
  5. REMIFENTANIL [Concomitant]
     Active Substance: REMIFENTANIL
     Indication: Anaesthesia
     Dosage: 2.4 MICROGRAM KG-1
  6. FENTANYL [Concomitant]
     Active Substance: FENTANYL\FENTANYL CITRATE
     Indication: Anaesthesia
     Dosage: 2.1 MICROGRAM KG-1
  7. SEVOFLURANE [Concomitant]
     Active Substance: SEVOFLURANE
     Indication: Anaesthesia

REACTIONS (4)
  - Neuromuscular block prolonged [Recovering/Resolving]
  - Recurrence of neuromuscular blockade [Recovering/Resolving]
  - Overdose [None]
  - Dose calculation error [None]
